FAERS Safety Report 16031497 (Version 2)
Quarter: 2019Q2

REPORT INFORMATION
  Report Type: Spontaneous
  Country: US (occurrence: US)
  Receive Date: 20190304
  Receipt Date: 20190426
  Transmission Date: 20190711
  Serious: No
  Sender: FDA-Public Use
  Company Number: US-PFIZER INC-2019083704

PATIENT
  Age: 44 Year
  Sex: Male
  Weight: 92.99 kg

DRUGS (1)
  1. SUTENT [Suspect]
     Active Substance: SUNITINIB MALATE
     Indication: RENAL CANCER
     Dosage: 50 MG, CYCLIC (ONCE A DAY FOR 2 WEEKS THEN OFF OF A WEEK)
     Dates: start: 20190201

REACTIONS (6)
  - Abdominal discomfort [Recovering/Resolving]
  - Ageusia [Recovering/Resolving]
  - Oral pain [Unknown]
  - Stomatitis [Recovered/Resolved]
  - Fatigue [Unknown]
  - Flatulence [Unknown]

NARRATIVE: CASE EVENT DATE: 201902
